FAERS Safety Report 5088072-5 (Version None)
Quarter: 2006Q3

REPORT INFORMATION
  Report Type: 
  Country: None (occurrence: None)
  Receive Date: 20060823
  Receipt Date: 20060823
  Transmission Date: 20061208
  Serious: Yes (Hospitalization)
  Sender: FDA-Public Use
  Company Number: None

PATIENT
  Age: 78 Year
  Weight: 93.441 kg

DRUGS (2)
  1. EXCEDRIN (MIGRAINE) [Suspect]
  2. ASPIRIN [Suspect]

REACTIONS (3)
  - DIZZINESS [None]
  - HAEMATEMESIS [None]
  - HEADACHE [None]
